FAERS Safety Report 11748429 (Version 3)
Quarter: 2015Q4

REPORT INFORMATION
  Report Type: Spontaneous
  Country: US (occurrence: US)
  Receive Date: 20151117
  Receipt Date: 20151127
  Transmission Date: 20160304
  Serious: No
  Sender: FDA-Public Use
  Company Number: US-PFIZER INC-2015391613

PATIENT
  Age: 8 Year
  Sex: Male
  Weight: 20.87 kg

DRUGS (1)
  1. ZOLOFT [Suspect]
     Active Substance: SERTRALINE HYDROCHLORIDE
     Indication: ANXIETY
     Dosage: 25 MG, UNK
     Dates: start: 20151009

REACTIONS (6)
  - Agitation [Unknown]
  - Abnormal behaviour [Not Recovered/Not Resolved]
  - Drug ineffective for unapproved indication [Unknown]
  - Irritability [Unknown]
  - Attention deficit/hyperactivity disorder [Not Recovered/Not Resolved]
  - Anger [Not Recovered/Not Resolved]

NARRATIVE: CASE EVENT DATE: 2015
